FAERS Safety Report 15127756 (Version 1)
Quarter: 2018Q3

REPORT INFORMATION
  Report Type: Spontaneous
  Country: CZ (occurrence: CZ)
  Receive Date: 20180710
  Receipt Date: 20180710
  Transmission Date: 20181010
  Serious: Yes (Hospitalization)
  Sender: FDA-Public Use
  Company Number: CZ-SHIRE-CZ201822887

PATIENT

DRUGS (1)
  1. 422 (ANAGRELIDE) [Suspect]
     Active Substance: ANAGRELIDE
     Indication: ESSENTIAL THROMBOCYTHAEMIA
     Dosage: HIGH DOSE DURING THE LAST SIX MONTHS
     Route: 065

REACTIONS (1)
  - Stress cardiomyopathy [Recovering/Resolving]
